FAERS Safety Report 6022367-3 (Version None)
Quarter: 2008Q4

REPORT INFORMATION
  Report Type: 
  Country: None (occurrence: None)
  Receive Date: 20081230
  Receipt Date: 20081219
  Transmission Date: 20090506
  Serious: Yes (Other)
  Sender: FDA-Public Use
  Company Number: SE-BAXTER-2008BH014133

PATIENT

DRUGS (2)
  1. DEXTROSE 2.5% AND SODIUM CHLORIDE 0.45% IN PLASTIC CONTAINER [Suspect]
     Indication: ILEUS
  2. DEXTROSE 2.5% AND SODIUM CHLORIDE 0.45% IN PLASTIC CONTAINER [Suspect]
     Indication: OFF LABEL USE

REACTIONS (1)
  - PYODERMA [None]
